FAERS Safety Report 4927928-8 (Version None)
Quarter: 2006Q1

REPORT INFORMATION
  Report Type: 
  Country: None (occurrence: None)
  Receive Date: 20060223
  Receipt Date: 20060213
  Transmission Date: 20060701
  Serious: Yes (Hospitalization)
  Sender: FDA-Public Use
  Company Number: 2006022637

PATIENT
  Age: 72 Year
  Sex: Male

DRUGS (10)
  1. FOSPHENYTOIN SODIUM [Suspect]
     Indication: ILL-DEFINED DISORDER
     Dosage: 1 GRAM (1 GRAM, 1 IN 1 D), INTRAVENOUS
     Route: 042
     Dates: start: 20051215, end: 20051215
  2. CLONAZEPAM [Suspect]
     Indication: ILL-DEFINED DISORDER
     Dosage: 1 MG (1 MG, 1 IN 1 D), INTRAVENOUS
     Route: 042
     Dates: start: 20051215, end: 20051215
  3. CIPROFLAXACIN [Concomitant]
  4. TAZOCILLINE (PIPERACILLIN SODIUM, TAZOBACTAM SODIUM) [Concomitant]
  5. MIDAZOLAM HCL [Concomitant]
  6. FENTANYL CITRATE [Concomitant]
  7. NEXIUM [Concomitant]
  8. ACTRAPID (INSULIN) [Concomitant]
  9. HYDROCORTISONE HEMISUCCINATE (HYDROCORTISONE HYDROGEN SUCCINATE) [Concomitant]
  10. NORADRENALINE (NOREPINEPHRINE) [Concomitant]

REACTIONS (2)
  - HYPOTENSION [None]
  - SUPRAVENTRICULAR EXTRASYSTOLES [None]
